FAERS Safety Report 19808302 (Version 1)
Quarter: 2021Q3

REPORT INFORMATION
  Report Type: Spontaneous
  Country: US (occurrence: US)
  Receive Date: 20210909
  Receipt Date: 20210909
  Transmission Date: 20211014
  Serious: No
  Sender: FDA-Public Use
  Company Number: US-DRREDDYS-SPO/USA/21/0139742

PATIENT
  Age: 42 Year
  Sex: Female

DRUGS (2)
  1. ZENATANE [Suspect]
     Active Substance: ISOTRETINOIN
     Indication: PRODUCT USED FOR UNKNOWN INDICATION
     Dosage: RMA ISSUE DATE: 19/MAY/2021 12:00:00 AM, 17/JUNE/2021 12:00:00 AM
  2. ZENATANE [Suspect]
     Active Substance: ISOTRETINOIN
     Dosage: RMA ISSUE DATE: 19/MAY/2021 12:00:00 AM, 17/JUNE/2021 12:00:00 AM AND 3/AUGUST/2021 12:00:00 AM

REACTIONS (1)
  - Therapy cessation [Unknown]
